FAERS Safety Report 11247371 (Version 1)
Quarter: 2015Q3

REPORT INFORMATION
  Report Type: Spontaneous
  Country: FR (occurrence: None)
  Receive Date: 20150706
  Receipt Date: 20150706
  Transmission Date: 20151125
  Serious: Yes (Hospitalization)
  Sender: FDA-Public Use
  Company Number: CO-PL-FR-2015-113

PATIENT
  Age: 52 Year
  Sex: Female

DRUGS (12)
  1. ALTIM (UNKNOWN) (CORTIVAZOL) [Concomitant]
  2. MIANSERINE (UNKNOWN) (MIANSERIN HYDROCHLORIDE) [Concomitant]
  3. INEXIUM (UNKNOWN) (ESOMEPRAZOLE MAGNESIUM) [Concomitant]
  4. CORTANCYL (UNKNOWN) (PREDNISONE) [Concomitant]
  5. BI TILDIEM (UNKNOWN) (DILTIAZEM HYDROCHLORIDE) [Concomitant]
  6. KLIPAL CODEINE (UNKNOWN) (CODEINE PHOSPHATE, PARACHETAMOL) [Concomitant]
  7. PLAQUENIL [Suspect]
     Active Substance: HYDROXYCHLOROQUINE SULFATE
     Indication: TYPE 2 DIABETES MELLITUS
     Route: 048
     Dates: start: 20150413, end: 20150504
  8. PLAVIX (UNKNOWN ) (CLOPIDOGREL BISULATE) [Concomitant]
  9. COLCHIMAX (UNKNOWN) (COLCHICINE, TIEMONIUM METHYLSULPHATE, PAPAVER SOMNIFERUM POWDER) [Concomitant]
  10. ALLOPURINOL (UNKNOWN) (ALLOPURINOL) [Concomitant]
  11. LAMALINE (UNKNOWN) (CAFFEINE, PARACETAMOL, PAPAVER SOMNIEFERUM LATEX) [Concomitant]
  12. CRESTOR (UNKNOWN) (ROSUBASTATIN CALCIUM) [Concomitant]

REACTIONS (12)
  - Pruritus [None]
  - Erythema [None]
  - Drug reaction with eosinophilia and systemic symptoms [None]
  - Cytomegalovirus test positive [None]
  - Eyelid oedema [None]
  - Face oedema [None]
  - Rash pustular [None]
  - Rash pruritic [None]
  - Drug ineffective [None]
  - Pyrexia [None]
  - Toxic skin eruption [None]
  - Rash papular [None]

NARRATIVE: CASE EVENT DATE: 20150430
